FAERS Safety Report 22850989 (Version 2)
Quarter: 2023Q4

REPORT INFORMATION
  Report Type: Spontaneous
  Country: GR (occurrence: GR)
  Receive Date: 20230822
  Receipt Date: 20231009
  Transmission Date: 20240110
  Serious: Yes (Other)
  Sender: FDA-Public Use
  Company Number: GR-BEH-2023161843

PATIENT
  Age: 2 Year

DRUGS (3)
  1. HUMAN IMMUNOGLOBULIN G [Suspect]
     Active Substance: HUMAN IMMUNOGLOBULIN G
     Indication: Kawasaki^s disease
     Dosage: UNK
     Route: 042
  2. ASPIRIN [Concomitant]
     Active Substance: ASPIRIN
     Indication: Kawasaki^s disease
     Dosage: 50 MILLIGRAM/KILOGRAM
     Route: 065
  3. METHYLPREDNISOLONE [Concomitant]
     Active Substance: METHYLPREDNISOLONE
     Dosage: UNK
     Route: 065

REACTIONS (7)
  - Reticulocyte count increased [Recovering/Resolving]
  - Haemoglobin decreased [Recovering/Resolving]
  - Haemolytic anaemia [Recovering/Resolving]
  - Pyrexia [Recovering/Resolving]
  - Haemolysis [Recovering/Resolving]
  - Coombs direct test positive [Recovering/Resolving]
  - Therapeutic product effect incomplete [Unknown]
